FAERS Safety Report 16958180 (Version 1)
Quarter: 2019Q4

REPORT INFORMATION
  Report Type: Spontaneous
  Country: US (occurrence: US)
  Receive Date: 20190906
  Receipt Date: 20190906
  Transmission Date: 20200122
  Serious: Yes (Disabling)
  Sender: FDA-Public Use
  Company Number: None

PATIENT
  Age: 79 Year
  Sex: Female
  Weight: 69.85 kg

DRUGS (9)
  1. FASLODEX [Suspect]
     Active Substance: FULVESTRANT
     Indication: PROPHYLAXIS
     Dosage: ?          QUANTITY:ONE SHOT EACH HIP;?
     Dates: start: 20190205
  2. HYDROCHLOROTHIAZIDE. [Concomitant]
     Active Substance: HYDROCHLOROTHIAZIDE
  3. POTASSIUM [Concomitant]
     Active Substance: POTASSIUM
  4. TIGER BALM (ARTHRITIS) [Concomitant]
  5. OMEPRAZOLE. [Concomitant]
     Active Substance: OMEPRAZOLE
  6. FASLODEX [Suspect]
     Active Substance: FULVESTRANT
     Indication: INVASIVE LOBULAR BREAST CARCINOMA
     Dosage: ?          QUANTITY:ONE SHOT EACH HIP;?
     Dates: start: 20190205
  7. FLECAINIDE [Concomitant]
     Active Substance: FLECAINIDE
  8. ATENOLOL. [Concomitant]
     Active Substance: ATENOLOL
  9. SIMVASTATIN. [Concomitant]
     Active Substance: SIMVASTATIN

REACTIONS (3)
  - Arthropathy [None]
  - Complication associated with device [None]
  - Positron emission tomogram abnormal [None]

NARRATIVE: CASE EVENT DATE: 20190205
